FAERS Safety Report 18541461 (Version 1)
Quarter: 2020Q4

REPORT INFORMATION
  Report Type: Spontaneous
  Country: US (occurrence: US)
  Receive Date: 20201124
  Receipt Date: 20201124
  Transmission Date: 20210114
  Serious: Yes (Hospitalization)
  Sender: FDA-Public Use
  Company Number: US-009507513-2011USA012462

PATIENT
  Age: 80 Year

DRUGS (11)
  1. TENORMIN [Suspect]
     Active Substance: ATENOLOL
     Dosage: 100 MILLIGRAM
     Route: 048
  2. AMARYL [Concomitant]
     Active Substance: GLIMEPIRIDE
  3. NITROSTAT [Concomitant]
     Active Substance: NITROGLYCERIN
     Dosage: AS REQUIRED
  4. METFORMIN [Concomitant]
     Active Substance: METFORMIN HYDROCHLORIDE
     Dosage: UNK
  5. NORVASC [Concomitant]
     Active Substance: AMLODIPINE BESYLATE
     Dosage: 10 MILLIGRAM
  6. CATAPRES [Concomitant]
     Active Substance: CLONIDINE HYDROCHLORIDE
     Dosage: 0.1 MILLIGRAM
  7. ASPIRIN. [Concomitant]
     Active Substance: ASPIRIN
     Dosage: 81 MILLIGRAM
  8. CATAPRES [Concomitant]
     Active Substance: CLONIDINE HYDROCHLORIDE
     Dosage: 0.2 MILLIGRAM
  9. PRINIVIL [Suspect]
     Active Substance: LISINOPRIL
     Dosage: 30 MILLIGRAM
     Route: 048
  10. BRILINTA [Suspect]
     Active Substance: TICAGRELOR
     Indication: CORONARY ARTERY DISEASE
     Dosage: 90 MILLIGRAM
     Route: 048
     Dates: end: 20150411
  11. IMDUR [Concomitant]
     Active Substance: ISOSORBIDE MONONITRATE
     Dosage: 30 MILLIGRAM

REACTIONS (3)
  - Chest pain [Unknown]
  - Product use in unapproved indication [Unknown]
  - Gastrointestinal haemorrhage [Unknown]
